FAERS Safety Report 4981026-6 (Version None)
Quarter: 2006Q2

REPORT INFORMATION
  Report Type: 
  Country: None (occurrence: None)
  Receive Date: 20060418
  Receipt Date: 20060407
  Transmission Date: 20061013
  Serious: Yes (Death)
  Sender: FDA-Public Use
  Company Number: 223956

PATIENT
  Age: 79 Year

DRUGS (2)
  1. AVASTIN [Suspect]
     Indication: LUNG NEOPLASM MALIGNANT
  2. GEMCITABINE [Concomitant]

REACTIONS (1)
  - DEATH [None]
